FAERS Safety Report 16419151 (Version 1)
Quarter: 2019Q2

REPORT INFORMATION
  Report Type: Report from Study
  Country: ES (occurrence: ES)
  Receive Date: 20190612
  Receipt Date: 20190612
  Transmission Date: 20190711
  Serious: Yes (Hospitalization, Other)
  Sender: FDA-Public Use
  Company Number: ES-SA-2019SA063124

PATIENT
  Sex: Female
  Weight: 52.5 kg

DRUGS (2)
  1. INSULIN GLARGINE [Suspect]
     Active Substance: INSULIN GLARGINE
     Indication: TYPE 2 DIABETES MELLITUS
     Dosage: 26 IU
     Route: 058
  2. NOVORAPID [Concomitant]
     Active Substance: INSULIN ASPART
     Indication: TYPE 2 DIABETES MELLITUS
     Route: 058

REACTIONS (6)
  - Rib fracture [Recovering/Resolving]
  - Anxiety [Recovering/Resolving]
  - Hyperglycaemia [Unknown]
  - Fall [Unknown]
  - Hypoglycaemia [Recovering/Resolving]
  - Musculoskeletal chest pain [Recovering/Resolving]
